FAERS Safety Report 9474854 (Version 1)
Quarter: 2013Q3

REPORT INFORMATION
  Report Type: Spontaneous
  Country: PL (occurrence: PL)
  Receive Date: 20130823
  Receipt Date: 20130823
  Transmission Date: 20140515
  Serious: Yes (Congenital Anomaly, Other)
  Sender: FDA-Public Use
  Company Number: PL-BIOMARINAP-PL-2013-101361

PATIENT
  Sex: Female
  Weight: 1.2 kg

DRUGS (4)
  1. KUVAN [Suspect]
     Indication: TETRAHYDROBIOPTERIN DEFICIENCY
     Dosage: 0.65 MG/KG, QD
     Route: 064
  2. SINEMET [Suspect]
     Indication: TETRAHYDROBIOPTERIN DEFICIENCY
     Dosage: 4.5 MG/KG, QD
     Route: 064
  3. OXITRIPTAN [Suspect]
     Indication: TETRAHYDROBIOPTERIN DEFICIENCY
     Dosage: 6.6 MG/KG, QD
     Route: 064
  4. PROGESTERONE [Concomitant]
     Indication: PROPHYLAXIS
     Route: 064

REACTIONS (7)
  - Brain malformation [Unknown]
  - Neonatal respiratory distress syndrome [Unknown]
  - Heart disease congenital [Unknown]
  - Cerebral palsy [Unknown]
  - Foetal growth restriction [Unknown]
  - Premature baby [Unknown]
  - Foetal exposure timing unspecified [Unknown]
